FAERS Safety Report 7524928-9 (Version None)
Quarter: 2011Q2

REPORT INFORMATION
  Report Type: 
  Country: None (occurrence: None)
  Receive Date: 20110526
  Receipt Date: 20110510
  Transmission Date: 20111010
  Serious: Yes (Death)
  Sender: FDA-Public Use
  Company Number: FK201101024

PATIENT
  Age: 37 Year
  Sex: Male

DRUGS (3)
  1. BLEOMYCIN (BLENOXANE) (BLENOXANE) [Suspect]
     Indication: TESTIS CANCER
  2. CISPLATIN [Suspect]
     Indication: TESTIS CANCER
  3. ETOPOSIDE [Suspect]
     Indication: TESTIS CANCER

REACTIONS (8)
  - SUDDEN CARDIAC DEATH [None]
  - MUSCULOSKELETAL PAIN [None]
  - CHEST PAIN [None]
  - MYOCARDIAL INFARCTION [None]
  - CORONARY ARTERY THROMBOSIS [None]
  - CORONARY ARTERY OCCLUSION [None]
  - CARDIAC ARREST [None]
  - FALL [None]
